FAERS Safety Report 7460260-X (Version None)
Quarter: 2011Q2

REPORT INFORMATION
  Report Type: 
  Country: None (occurrence: None)
  Receive Date: 20110505
  Receipt Date: 20110216
  Transmission Date: 20111010
  Serious: Yes (Hospitalization, Other)
  Sender: FDA-Public Use
  Company Number: US-BAYER-201023629NA

PATIENT
  Age: 24 Year
  Sex: Female
  Weight: 117.91 kg

DRUGS (8)
  1. PITOCIN [Concomitant]
     Dosage: UNK
     Route: 042
     Dates: end: 20091012
  2. ZOFRAN [Concomitant]
     Dosage: UNK
     Route: 042
     Dates: end: 20091012
  3. YASMIN [Suspect]
     Route: 048
     Dates: start: 20050908
  4. YAZ [Suspect]
     Indication: PRODUCT USED FOR UNKNOWN INDICATION
     Route: 048
     Dates: start: 20091101, end: 20091203
  5. ACETAMINOPHEN [Concomitant]
     Dosage: UNK UNK, PRN
     Route: 048
  6. NUBAIN [Concomitant]
     Dosage: UNK
     Route: 042
     Dates: end: 20091012
  7. IBUPROFEN [Concomitant]
     Dosage: UNK
     Route: 048
     Dates: end: 20091012
  8. FENTANYL [Concomitant]
     Dosage: UNK
     Route: 042
     Dates: end: 20091012

REACTIONS (2)
  - ABASIA [None]
  - DEEP VEIN THROMBOSIS [None]
